FAERS Safety Report 4994312-0 (Version None)
Quarter: 2006Q2

REPORT INFORMATION
  Report Type: 
  Country: None (occurrence: None)
  Receive Date: 20060503
  Receipt Date: 20060421
  Transmission Date: 20061013
  Serious: Yes (Other)
  Sender: FDA-Public Use
  Company Number: 2006054992

PATIENT
  Age: 30 Year
  Sex: Female

DRUGS (18)
  1. DEPO-PROVERA [Suspect]
     Indication: CONTRACEPTION
     Dosage: SEE IMAGE
     Route: 030
     Dates: start: 19940101, end: 19940101
  2. DEPO-PROVERA [Suspect]
     Indication: CONTRACEPTION
     Dosage: SEE IMAGE
     Route: 030
     Dates: start: 20020101, end: 20020101
  3. DEPO-PROVERA [Suspect]
     Indication: CONTRACEPTION
     Dosage: SEE IMAGE
     Route: 030
     Dates: start: 20030101, end: 20030101
  4. MORPHINE [Concomitant]
  5. HYDROCODONE BITARTRATE [Concomitant]
  6. SOMA [Concomitant]
  7. MIRALAX [Concomitant]
  8. GUAIFENESIN (GUAIFENESIN) [Concomitant]
  9. CYMBALTA [Concomitant]
  10. FLOVENT [Concomitant]
  11. COMBIVENT [Concomitant]
  12. ALBUTEROL [Concomitant]
  13. ADVAIR DISKUS 100/50 [Concomitant]
  14. MAGNESIUM (MAGNESIUM) [Concomitant]
  15. DETROL LA [Concomitant]
  16. NEURONTIN [Concomitant]
  17. TIZANIDINE HCL [Concomitant]
  18. LEXAPRO [Concomitant]

REACTIONS (13)
  - ABORTION SPONTANEOUS [None]
  - AMENORRHOEA [None]
  - COMPLICATION OF PREGNANCY [None]
  - CONDITION AGGRAVATED [None]
  - DRUG EXPOSURE DURING PREGNANCY [None]
  - FATIGUE [None]
  - FIBROMYALGIA [None]
  - IRRITABILITY [None]
  - MENORRHAGIA [None]
  - METRORRHAGIA [None]
  - NERVOUSNESS [None]
  - STRESS [None]
  - TEMPOROMANDIBULAR JOINT SYNDROME [None]
